FAERS Safety Report 19820273 (Version 1)
Quarter: 2021Q3

REPORT INFORMATION
  Report Type: Spontaneous
  Country: ES (occurrence: ES)
  Receive Date: 20210913
  Receipt Date: 20210913
  Transmission Date: 20211014
  Serious: Yes (Hospitalization)
  Sender: FDA-Public Use
  Company Number: NVSC2021ES202944

PATIENT
  Age: 63 Year
  Sex: Male

DRUGS (2)
  1. PIPERACILINA+TAZOBACTAM [Suspect]
     Active Substance: PIPERACILLIN SODIUM\TAZOBACTAM SODIUM
     Indication: URINARY TRACT INFECTION
     Dosage: 4 G DE PIPERACILINA/0,5 G DE TAZOBACTAM ADMINISTRADOS CADA 6 HORAS
     Route: 042
     Dates: start: 20201227
  2. CEFIXIMA [Suspect]
     Active Substance: CEFIXIME
     Indication: URINARY TRACT INFECTION
     Dosage: 1 DF, Q24H (1 CAPSULA CADA 24 HORAS)
     Route: 048
     Dates: start: 20201224, end: 20201227

REACTIONS (1)
  - Cutaneous vasculitis [Recovering/Resolving]

NARRATIVE: CASE EVENT DATE: 20201227
